FAERS Safety Report 17258773 (Version 1)
Quarter: 2020Q1

REPORT INFORMATION
  Report Type: Report from Study
  Country: US (occurrence: US)
  Receive Date: 20200110
  Receipt Date: 20200110
  Transmission Date: 20200409
  Serious: Yes (Hospitalization)
  Sender: FDA-Public Use
  Company Number: US-GILEAD-2019-0439170

PATIENT
  Age: 28 Year
  Sex: Female
  Weight: 78.5 kg

DRUGS (3)
  1. TYVASO [Suspect]
     Active Substance: TREPROSTINIL
     Indication: PULMONARY ARTERIAL HYPERTENSION
     Dosage: 60-120 MCG (10-20 BREATHS), QID
     Route: 055
     Dates: start: 20191112
  2. TYVASO [Suspect]
     Active Substance: TREPROSTINIL
     Dosage: 8 BREATHS PER TREATMENT
     Route: 055
     Dates: start: 20191220
  3. AMBRISENTAN [Suspect]
     Active Substance: AMBRISENTAN
     Indication: PULMONARY ARTERIAL HYPERTENSION
     Dosage: 10 MG, QD
     Route: 048
     Dates: start: 20191118

REACTIONS (8)
  - Dizziness postural [Not Recovered/Not Resolved]
  - Complication associated with device [Not Recovered/Not Resolved]
  - Liver disorder [Unknown]
  - Vomiting [Unknown]
  - Chest pain [Unknown]
  - Pain in extremity [Unknown]
  - Dizziness [Unknown]
  - Headache [Not Recovered/Not Resolved]
